FAERS Safety Report 10987488 (Version 2)
Quarter: 2015Q2

REPORT INFORMATION
  Report Type: Spontaneous
  Country: US (occurrence: US)
  Receive Date: 20150404
  Receipt Date: 20150525
  Transmission Date: 20150821
  Serious: Yes (Other)
  Sender: FDA-Public Use
  Company Number: US-JNJFOC-20121004716

PATIENT

DRUGS (1)
  1. INFLIXIMAB, RECOMBINANT [Suspect]
     Active Substance: INFLIXIMAB
     Indication: SARCOIDOSIS
     Dosage: 3-5 MG/KG INITIALLY, 2 WEEKS LATER AND THEN ONCE A MONTH (19)
     Route: 042

REACTIONS (4)
  - Rash [Unknown]
  - Arthralgia [Unknown]
  - Toxicity to various agents [Unknown]
  - Anaphylactic reaction [Unknown]
